FAERS Safety Report 11026956 (Version 2)
Quarter: 2015Q2

REPORT INFORMATION
  Report Type: Spontaneous
  Country: US (occurrence: US)
  Receive Date: 20150414
  Receipt Date: 20150527
  Transmission Date: 20150821
  Serious: No
  Sender: FDA-Public Use
  Company Number: US-ELI_LILLY_AND_COMPANY-US201504002050

PATIENT
  Age: 80 Year
  Sex: Male

DRUGS (5)
  1. METFORMIN [Concomitant]
     Active Substance: METFORMIN HYDROCHLORIDE
     Dosage: 2 DF, EACH MORNING
  2. HUMALOG [Suspect]
     Active Substance: INSULIN LISPRO
     Indication: TYPE 2 DIABETES MELLITUS
     Dosage: 12 U, QID
     Route: 065
     Dates: start: 2013
  3. LANTUS [Concomitant]
     Active Substance: INSULIN GLARGINE
     Dosage: 33 U, QD
  4. HUMALOG [Suspect]
     Active Substance: INSULIN LISPRO
     Dosage: 12 U, QID
     Route: 065
     Dates: start: 2013
  5. METFORMIN [Concomitant]
     Active Substance: METFORMIN HYDROCHLORIDE
     Dosage: 2 DF, EACH EVENING

REACTIONS (1)
  - Underdose [Unknown]

NARRATIVE: CASE EVENT DATE: 20150406
